FAERS Safety Report 7041222-3 (Version None)
Quarter: 2010Q4

REPORT INFORMATION
  Report Type: 
  Country: None (occurrence: None)
  Receive Date: 20101007
  Receipt Date: 20100922
  Transmission Date: 20110411
  Serious: Yes (Hospitalization)
  Sender: FDA-Public Use
  Company Number: DSA_44045_2010

PATIENT
  Age: 66 Year
  Sex: Female

DRUGS (2)
  1. MASDIL (MASDIL- DILTIAZEM HYDROCHLORIDE) 2 MG (NOT SPECIFIED) [Suspect]
     Indication: ATRIAL FIBRILLATION
     Dosage: (2 MG QD INTRAVENOUS (NOT OTHERWISE SPECIFIED)
     Route: 042
     Dates: start: 20100326, end: 20100326
  2. SIMVASTATIN [Concomitant]

REACTIONS (4)
  - BRADYCARDIA [None]
  - DIZZINESS [None]
  - HYPOTENSION [None]
  - HYPOXIA [None]
